FAERS Safety Report 13079663 (Version 1)
Quarter: 2017Q1

REPORT INFORMATION
  Report Type: Spontaneous
  Country: US (occurrence: US)
  Receive Date: 20170103
  Receipt Date: 20170103
  Transmission Date: 20170428
  Serious: No
  Sender: FDA-Public Use
  Company Number: US-ASTRAZENECA-2016SF34786

PATIENT

DRUGS (4)
  1. SYMBICORT [Suspect]
     Active Substance: BUDESONIDE\FORMOTEROL FUMARATE DIHYDRATE
     Dosage: DOSE UNKNOWN
     Route: 055
  2. ADVAIR HFA [Concomitant]
     Active Substance: FLUTICASONE PROPIONATE\SALMETEROL XINAFOATE
     Dosage: UNKNOWN
     Route: 065
  3. QUININE [Concomitant]
     Active Substance: QUININE
  4. SPIRIVA [Concomitant]
     Active Substance: TIOTROPIUM BROMIDE MONOHYDRATE
     Dosage: UNKNOWN
     Route: 065

REACTIONS (3)
  - Muscle spasms [Unknown]
  - Contusion [Unknown]
  - Drug dose omission [Unknown]
